FAERS Safety Report 12104021 (Version 1)
Quarter: 2016Q1

REPORT INFORMATION
  Report Type: Spontaneous
  Country: US (occurrence: US)
  Receive Date: 20160223
  Receipt Date: 20160223
  Transmission Date: 20160526
  Serious: No
  Sender: FDA-Public Use
  Company Number: US-TEVA-567877USA

PATIENT
  Sex: Male

DRUGS (1)
  1. DISOPYRAMIDE [Suspect]
     Active Substance: DISOPYRAMIDE
     Indication: ATRIAL FIBRILLATION
     Route: 065

REACTIONS (2)
  - Product substitution issue [Unknown]
  - Drug ineffective [Unknown]
